FAERS Safety Report 4647658-X (Version None)
Quarter: 2005Q2

REPORT INFORMATION
  Report Type: 
  Country: None (occurrence: None)
  Receive Date: 20050426
  Receipt Date: 20050413
  Transmission Date: 20051028
  Serious: Yes (Hospitalization)
  Sender: FDA-Public Use
  Company Number: HQWYE630713JAN05

PATIENT
  Age: 45 Year
  Sex: Male
  Weight: 78.8 kg

DRUGS (15)
  1. RAPAMUNE [Suspect]
     Indication: PROPHYLAXIS AGAINST TRANSPLANT REJECTION
     Dosage: SEE IMAGE
     Route: 048
     Dates: start: 20041003, end: 20041228
  2. RAPAMUNE [Suspect]
     Indication: PROPHYLAXIS AGAINST TRANSPLANT REJECTION
     Dosage: SEE IMAGE
     Route: 048
     Dates: start: 20041229, end: 20050104
  3. MEDROL [Suspect]
     Indication: PROPHYLAXIS AGAINST TRANSPLANT REJECTION
     Dosage: SEE IMAGE
     Route: 048
     Dates: end: 20050116
  4. MEDROL [Suspect]
     Indication: PROPHYLAXIS AGAINST TRANSPLANT REJECTION
     Dosage: SEE IMAGE
     Route: 048
     Dates: start: 20050117, end: 20050123
  5. PROGRAF [Suspect]
     Indication: PROPHYLAXIS AGAINST TRANSPLANT REJECTION
     Dosage: SEE IMAGE
     Route: 048
     Dates: end: 20050115
  6. PROGRAF [Suspect]
     Indication: PROPHYLAXIS AGAINST TRANSPLANT REJECTION
     Dosage: SEE IMAGE
     Route: 048
     Dates: start: 20050116
  7. ADALAT [Concomitant]
  8. LOPRESSOR [Concomitant]
  9. PROTONIX [Concomitant]
  10. BACTRIM [Concomitant]
  11. K-OHOS NEUTRAL (POTASSIUM PHOSPHATE MONOBASIC/SODIUM PHOSPHATE DIBASIC [Concomitant]
  12. MULTIVITAMINS (ASCORBIC ACID/ERTOCALCIFEROL/FOLIC ACID/NICOTINAMIDE/PA [Concomitant]
  13. ASPIRIN [Concomitant]
  14. CELLCEPT [Concomitant]
  15. AVAPRO [Concomitant]

REACTIONS (5)
  - ASEPTIC NECROSIS BONE [None]
  - DEEP VEIN THROMBOSIS [None]
  - HAEMATOCRIT DECREASED [None]
  - HAEMOGLOBIN DECREASED [None]
  - HYDRONEPHROSIS [None]
